FAERS Safety Report 15764472 (Version 1)
Quarter: 2018Q4

REPORT INFORMATION
  Report Type: Spontaneous
  Country: PL (occurrence: PL)
  Receive Date: 20181227
  Receipt Date: 20181227
  Transmission Date: 20190205
  Serious: Yes (Hospitalization)
  Sender: FDA-Public Use
  Company Number: PL-AMGEN-POLSP2018185700

PATIENT
  Age: 51 Year
  Sex: Male

DRUGS (4)
  1. CEFTRIAXON [Concomitant]
     Active Substance: CEFTRIAXONE
     Indication: SUPERINFECTION BACTERIAL
     Dosage: 2 G, QD
     Route: 042
  2. DEXAMETHASON [Concomitant]
     Active Substance: DEXAMETHASONE
     Indication: RASH PUSTULAR
     Dosage: 16 MG, QD
     Route: 042
  3. PANITUMUMAB [Suspect]
     Active Substance: PANITUMUMAB
     Indication: RECTAL ADENOCARCINOMA
     Dosage: UNK
     Route: 042
  4. ACITRETIN. [Suspect]
     Active Substance: ACITRETIN
     Indication: RASH PUSTULAR
     Dosage: 50 MG, UNK
     Route: 048

REACTIONS (6)
  - Rash pustular [Recovering/Resolving]
  - Paronychia [Recovering/Resolving]
  - Pruritus generalised [Recovering/Resolving]
  - Erythema [Recovering/Resolving]
  - Skin exfoliation [Recovering/Resolving]
  - Hair disorder [Recovering/Resolving]
